FAERS Safety Report 7635996-8 (Version None)
Quarter: 2011Q3

REPORT INFORMATION
  Report Type: 
  Country: None (occurrence: None)
  Receive Date: 20110726
  Receipt Date: 20110713
  Transmission Date: 20111222
  Serious: Yes (Hospitalization, Other)
  Sender: FDA-Public Use
  Company Number: US-ROCHE-770008

PATIENT
  Sex: Female
  Weight: 61.2 kg

DRUGS (1)
  1. ACCUTANE [Suspect]
     Route: 065
     Dates: start: 19980401, end: 19991201

REACTIONS (8)
  - CHEST PAIN [None]
  - INFLAMMATORY BOWEL DISEASE [None]
  - COLITIS ULCERATIVE [None]
  - ANXIETY [None]
  - EYELID PTOSIS [None]
  - OVARIAN CYST [None]
  - CROHN'S DISEASE [None]
  - DEPRESSION [None]
